FAERS Safety Report 5405565-9 (Version None)
Quarter: 2007Q3

REPORT INFORMATION
  Report Type: 
  Country: None (occurrence: None)
  Receive Date: 20070803
  Receipt Date: 20070725
  Transmission Date: 20080115
  Serious: Yes (Other)
  Sender: FDA-Public Use
  Company Number: US-PFIZER INC-2007062732

PATIENT
  Sex: Female
  Weight: 63.636 kg

DRUGS (4)
  1. CHANTIX [Suspect]
     Indication: SMOKING CESSATION THERAPY
     Dates: start: 20070301, end: 20070615
  2. NAPROXEN [Concomitant]
  3. DIOVAN [Concomitant]
  4. VITAMIN B [Concomitant]

REACTIONS (3)
  - BLOOD GLUCOSE INCREASED [None]
  - TYPE 2 DIABETES MELLITUS [None]
  - WEIGHT INCREASED [None]
